FAERS Safety Report 4657378-3 (Version None)
Quarter: 2005Q2

REPORT INFORMATION
  Report Type: 
  Country: None (occurrence: None)
  Receive Date: 20050405
  Receipt Date: 20040623
  Transmission Date: 20051028
  Serious: Yes (Other)
  Sender: FDA-Public Use
  Company Number: 2004042609

PATIENT
  Age: 27 Year
  Sex: Male

DRUGS (2)
  1. GEODON [Suspect]
     Indication: BIPOLAR DISORDER
     Dosage: 40 MG, ORAL
     Route: 048
  2. OXCARBAZEPINE (OXCARBAZEPINE) [Concomitant]

REACTIONS (2)
  - MANIA [None]
  - SWOLLEN TONGUE [None]
